FAERS Safety Report 17585616 (Version 6)
Quarter: 2020Q2

REPORT INFORMATION
  Report Type: Report from Study
  Country: FR (occurrence: FR)
  Receive Date: 20200326
  Receipt Date: 20200612
  Transmission Date: 20200713
  Serious: Yes (Death, Hospitalization)
  Sender: FDA-Public Use
  Company Number: FR-EISAI MEDICAL RESEARCH-EC-2020-072276

PATIENT
  Age: 62 Year
  Sex: Male
  Weight: 83 kg

DRUGS (19)
  1. METFORMIN [Concomitant]
     Active Substance: METFORMIN HYDROCHLORIDE
     Dates: start: 20061110
  2. METEOSPASMYL [Concomitant]
     Dates: start: 20191017
  3. INSULIN [Concomitant]
     Active Substance: INSULIN NOS
     Dates: start: 20120831
  4. TOCO [Concomitant]
     Active Substance: .ALPHA.-TOCOPHEROL ACETATE, D-
     Dates: start: 20120319
  5. CODOLIPRANE [Concomitant]
     Active Substance: ACETAMINOPHEN\CODEINE PHOSPHATE
     Dates: start: 20191120
  6. PEMBROLIZUMAB. [Suspect]
     Active Substance: PEMBROLIZUMAB
     Indication: HEPATOCELLULAR CARCINOMA
     Dates: start: 20191114, end: 20200116
  7. PROPRANOLOL [Concomitant]
     Active Substance: PROPRANOLOL HYDROCHLORIDE
     Dates: start: 20150304
  8. KARDEGIC [Concomitant]
     Active Substance: ASPIRIN DL-LYSINE
     Dates: start: 20110114
  9. PENTASA [Concomitant]
     Active Substance: MESALAMINE
     Dates: start: 20191017
  10. TOPALGIC [Concomitant]
     Dates: start: 20200227
  11. TARDYFERON [Concomitant]
     Active Substance: FERROUS SULFATE
     Dates: start: 20191113
  12. FIVASA [Concomitant]
     Dates: start: 20191017
  13. LENVATINIB [Suspect]
     Active Substance: LENVATINIB
     Indication: HEPATOCELLULAR CARCINOMA
     Dosage: FLUCTUATED DOSES STARTING AT 12 MILLIGRAM
     Route: 048
     Dates: start: 20191114, end: 20200225
  14. LENVATINIB [Suspect]
     Active Substance: LENVATINIB
     Route: 048
     Dates: start: 20200226, end: 20200226
  15. PEMBROLIZUMAB. [Suspect]
     Active Substance: PEMBROLIZUMAB
     Dates: start: 20200206, end: 20200206
  16. HUMALOG [Concomitant]
     Active Substance: INSULIN LISPRO
     Dates: start: 20191017
  17. PANTOPRAZOLE [Concomitant]
     Active Substance: PANTOPRAZOLE
     Dates: start: 20030319
  18. PERINDOPRIL [Concomitant]
     Active Substance: PERINDOPRIL
     Dates: start: 20090917
  19. CHOLURSO [Concomitant]
     Active Substance: URSODIOL
     Dates: start: 20120319

REACTIONS (1)
  - Neutropenia [Not Recovered/Not Resolved]

NARRATIVE: CASE EVENT DATE: 20200316
